FAERS Safety Report 8387028-4 (Version None)
Quarter: 2012Q2

REPORT INFORMATION
  Report Type: 
  Country: None (occurrence: None)
  Receive Date: 20120525
  Receipt Date: 20120517
  Transmission Date: 20120825
  Serious: Yes (Hospitalization)
  Sender: FDA-Public Use
  Company Number: US-ACTELION-A-NJ2010-37785

PATIENT

DRUGS (7)
  1. TRACLEER [Suspect]
     Indication: PULMONARY ARTERIAL HYPERTENSION
     Dosage: UNK
     Route: 048
     Dates: start: 20100610
  2. TRACLEER [Suspect]
     Dosage: UNK
     Route: 048
  3. ASPIRIN [Concomitant]
  4. WARFARIN SODIUM [Concomitant]
  5. CARDIZEM [Concomitant]
  6. PLAVIX [Concomitant]
  7. LASIX [Concomitant]

REACTIONS (6)
  - DIZZINESS [None]
  - EYE OPERATION [None]
  - BRADYCARDIA [None]
  - CHEST PAIN [None]
  - DYSPNOEA [None]
  - OEDEMA PERIPHERAL [None]
